FAERS Safety Report 7051984-7 (Version None)
Quarter: 2010Q4

REPORT INFORMATION
  Report Type: 
  Country: None (occurrence: None)
  Receive Date: 20101019
  Receipt Date: 20101015
  Transmission Date: 20110411
  Serious: Yes (Death)
  Sender: FDA-Public Use
  Company Number: A0879991A

PATIENT
  Sex: Female

DRUGS (2)
  1. TYKERB [Suspect]
     Dosage: 1250MG PER DAY
     Route: 048
     Dates: start: 20100901, end: 20101008
  2. FLUOROURACIL [Concomitant]
     Route: 042

REACTIONS (4)
  - BLOOD TEST ABNORMAL [None]
  - DEATH [None]
  - DIARRHOEA [None]
  - VOMITING [None]
